FAERS Safety Report 5375060-4 (Version None)
Quarter: 2007Q2

REPORT INFORMATION
  Report Type: 
  Country: None (occurrence: None)
  Receive Date: 20070629
  Receipt Date: 20070517
  Transmission Date: 20071010
  Serious: No
  Sender: FDA-Public Use
  Company Number: A0651751A

PATIENT
  Age: 49 Year
  Sex: Female

DRUGS (5)
  1. AVANDARYL [Suspect]
     Route: 048
  2. METFORMIN HCL [Concomitant]
  3. ZESTRIL [Concomitant]
  4. ALTACE [Concomitant]
  5. MARLYN [Concomitant]

REACTIONS (1)
  - SWELLING [None]
